FAERS Safety Report 8341236-7 (Version None)
Quarter: 2012Q2

REPORT INFORMATION
  Report Type: 
  Country: None (occurrence: None)
  Receive Date: 20120507
  Receipt Date: 20120423
  Transmission Date: 20120825
  Serious: Yes (Death, Life-Threatening, Hospitalization)
  Sender: FDA-Public Use
  Company Number: US-MYLANLABS-2008AL010865

PATIENT
  Age: 65 Year
  Sex: Female

DRUGS (31)
  1. LASIX [Concomitant]
  2. COREG [Concomitant]
  3. SOLU-MEDROL [Concomitant]
  4. VANCOMYCIN [Concomitant]
  5. ALDACTONE [Concomitant]
  6. PERSANTINE [Concomitant]
  7. PROSTAT /00833501/ [Concomitant]
  8. DIGOXIN [Suspect]
     Indication: CARDIAC DISORDER
     Route: 048
     Dates: start: 20050604, end: 20081203
  9. POTASSIUM CHLORIDE [Concomitant]
  10. SEROQUEL [Concomitant]
  11. PULMICORT [Concomitant]
  12. ZINC SULFATE [Concomitant]
  13. LEVOPHED [Concomitant]
  14. NITROGLYCERIN [Concomitant]
  15. REVATIO [Concomitant]
  16. VITAMIN C [Concomitant]
  17. BROVANA [Concomitant]
  18. BETA BLOCKING AGENTS [Concomitant]
  19. LEXAPRO [Concomitant]
  20. NOVOLOG [Concomitant]
     Dosage: SLIDING SCALE
  21. LEVOFLOXACIN [Concomitant]
  22. ASPIRIN [Concomitant]
     Indication: ANTIPLATELET THERAPY
  23. FUROSEMIDE [Concomitant]
  24. ACE INHIBITORS [Concomitant]
  25. SENSIPAR [Concomitant]
  26. NEXIUM [Concomitant]
  27. AMLODIPINE BESYLATE [Concomitant]
     Indication: BLOOD PRESSURE
  28. LOVENOX [Concomitant]
     Route: 058
  29. MARINOL /00003301/ [Concomitant]
  30. ATIVAN [Concomitant]
  31. LORTAB [Concomitant]

REACTIONS (120)
  - HYPERCALCAEMIA [None]
  - DIABETES MELLITUS [None]
  - HEPATIC CIRRHOSIS [None]
  - ANAEMIA OF CHRONIC DISEASE [None]
  - ARTERIOSCLEROSIS [None]
  - COMMUNICATION DISORDER [None]
  - CONDITION AGGRAVATED [None]
  - GALLOP RHYTHM PRESENT [None]
  - HEART SOUNDS ABNORMAL [None]
  - HYPERHIDROSIS [None]
  - IMPULSIVE BEHAVIOUR [None]
  - PROLONGED EXPIRATION [None]
  - RIGHT ATRIAL PRESSURE INCREASED [None]
  - VENTRICULAR HYPERTROPHY [None]
  - PAIN [None]
  - EMOTIONAL DISTRESS [None]
  - ASTHENIA [None]
  - HYPOXIA [None]
  - MYOCARDIAL INFARCTION [None]
  - PERICARDIAL EFFUSION [None]
  - OEDEMA [None]
  - OEDEMA PERIPHERAL [None]
  - ILEUS [None]
  - CARDIOMEGALY [None]
  - CHEST PAIN [None]
  - ECHOCARDIOGRAM ABNORMAL [None]
  - PNEUMONIA [None]
  - PULSE ABNORMAL [None]
  - REFUSAL OF TREATMENT BY PATIENT [None]
  - TOOTH EROSION [None]
  - ADVERSE DRUG REACTION [None]
  - DISEASE PROGRESSION [None]
  - RESPIRATORY DISTRESS [None]
  - BRAIN NATRIURETIC PEPTIDE ABNORMAL [None]
  - DIZZINESS [None]
  - DYSPNOEA [None]
  - FACIAL WASTING [None]
  - HYPERTENSION [None]
  - PALPITATIONS [None]
  - TOOTH LOSS [None]
  - WHEEZING [None]
  - ILL-DEFINED DISORDER [None]
  - ENCEPHALOPATHY [None]
  - RENAL FAILURE CHRONIC [None]
  - COR PULMONALE [None]
  - CARDIAC VALVE DISEASE [None]
  - CHRONIC RESPIRATORY FAILURE [None]
  - CARDIAC DISORDER [None]
  - RENAL FAILURE ACUTE [None]
  - CARDIOMYOPATHY [None]
  - RENAL TUBULAR NECROSIS [None]
  - ARCUS LIPOIDES [None]
  - BLOOD POTASSIUM INCREASED [None]
  - CACHEXIA [None]
  - DILATATION VENTRICULAR [None]
  - FLUID OVERLOAD [None]
  - LABORATORY TEST ABNORMAL [None]
  - MUSCLE ATROPHY [None]
  - NAUSEA [None]
  - RIGHT ATRIAL DILATATION [None]
  - VISION BLURRED [None]
  - VISUAL IMPAIRMENT [None]
  - WOUND [None]
  - ECONOMIC PROBLEM [None]
  - ANXIETY [None]
  - MENTAL STATUS CHANGES [None]
  - CARDIAC ARREST [None]
  - CARDIAC FAILURE CONGESTIVE [None]
  - CORONARY ARTERY DISEASE [None]
  - ACUTE RESPIRATORY FAILURE [None]
  - SEPSIS [None]
  - ELECTROCARDIOGRAM QT PROLONGED [None]
  - BLOOD PRESSURE FLUCTUATION [None]
  - CHEST DISCOMFORT [None]
  - HYPOCALCAEMIA [None]
  - MALNUTRITION [None]
  - PHYSICAL EXAMINATION ABNORMAL [None]
  - RENAL CYST [None]
  - SKIN ULCER [None]
  - TRACHEOSTOMY MALFUNCTION [None]
  - DEATH [None]
  - RESPIRATORY FAILURE [None]
  - PULMONARY HYPERTENSION [None]
  - ASCITES [None]
  - CONDUCTION DISORDER [None]
  - CONFUSIONAL STATE [None]
  - DECUBITUS ULCER [None]
  - CARDIAC MURMUR [None]
  - HYPOKINESIA [None]
  - MEMORY IMPAIRMENT [None]
  - RIGHT VENTRICULAR HYPERTROPHY [None]
  - TRACHEAL STENOSIS [None]
  - VENOUS INSUFFICIENCY [None]
  - INJURY [None]
  - ATRIAL FLUTTER [None]
  - ABNORMAL LOSS OF WEIGHT [None]
  - CHEST X-RAY ABNORMAL [None]
  - COGNITIVE DISORDER [None]
  - COMPUTERISED TOMOGRAM ABDOMEN ABNORMAL [None]
  - COUGH [None]
  - EXTRASYSTOLES [None]
  - GENERAL PHYSICAL HEALTH DETERIORATION [None]
  - HYPERPARATHYROIDISM PRIMARY [None]
  - HYPOTENSION [None]
  - RALES [None]
  - RHONCHI [None]
  - URINE OUTPUT DECREASED [None]
  - CHRONIC OBSTRUCTIVE PULMONARY DISEASE [None]
  - ATELECTASIS [None]
  - AMNESIA [None]
  - BLOOD CREATININE INCREASED [None]
  - DYSPHAGIA [None]
  - DYSPHONIA [None]
  - GENERALISED OEDEMA [None]
  - JUGULAR VEIN DISTENSION [None]
  - LETHARGY [None]
  - MECHANICAL VENTILATION [None]
  - TREATMENT FAILURE [None]
  - VENTRICULAR EXTRASYSTOLES [None]
  - WEIGHT DECREASED [None]
